FAERS Safety Report 8323231-7 (Version None)
Quarter: 2012Q2

REPORT INFORMATION
  Report Type: 
  Country: None (occurrence: None)
  Receive Date: 20120430
  Receipt Date: 20120425
  Transmission Date: 20120825
  Serious: Yes (Other)
  Sender: FDA-Public Use
  Company Number: US-PFIZER INC-2012103205

PATIENT
  Sex: Female
  Weight: 79 kg

DRUGS (13)
  1. ACCURETIC [Suspect]
     Indication: HYPERTENSION
     Dosage: 20/12.5 MG, 1X/DAY
     Route: 048
  2. FIORICET [Concomitant]
     Dosage: AS NEEDED
  3. ACETYLSALICYLIC ACID [Concomitant]
     Indication: CARDIAC DISORDER
     Dosage: UNK
  4. ACCURETIC [Suspect]
     Dosage: 20/12.5 MG, 2X\DAY
     Route: 048
  5. ALLEGRA [Concomitant]
     Indication: HYPERSENSITIVITY
     Dosage: 1X/DAY
  6. ALPRAZOLAM [Concomitant]
     Dosage: 0.5 MG, AS NEEDED
  7. VITAMIN D [Concomitant]
     Indication: HYPOVITAMINOSIS
     Dosage: UNK
  8. LOVAZA [Concomitant]
     Dosage: UNK
  9. ALBUTEROL [Concomitant]
     Indication: ASTHMA
     Dosage: AS NEEDED
  10. NARDIL [Concomitant]
     Dosage: 15 MG, 3X/DAY
  11. BISACODYL [Concomitant]
     Dosage: 5 MG, UNK
  12. LACTULOSE [Concomitant]
     Indication: CONSTIPATION
     Dosage: UNK
  13. NEXIUM [Concomitant]
     Dosage: 40 MG, 2X/DAY

REACTIONS (4)
  - BLOOD POTASSIUM ABNORMAL [None]
  - APPARENT DEATH [None]
  - PAIN IN EXTREMITY [None]
  - NEURALGIA [None]
